FAERS Safety Report 6200217-X (Version None)
Quarter: 2009Q2

REPORT INFORMATION
  Report Type: 
  Country: None (occurrence: None)
  Receive Date: 20090522
  Receipt Date: 20070810
  Transmission Date: 20091009
  Serious: Yes (Hospitalization)
  Sender: FDA-Public Use
  Company Number: US-ALEXION-A200700041

PATIENT
  Sex: Male

DRUGS (11)
  1. SOLIRIS [Suspect]
     Indication: PAROXYSMAL NOCTURNAL HAEMOGLOBINURIA
     Dosage: 600 MG, SINGLE
     Route: 042
     Dates: start: 20070601, end: 20070601
  2. SOLIRIS [Suspect]
     Dosage: 600 MG, SINGLE
     Route: 042
     Dates: start: 20070608, end: 20070608
  3. SOLIRIS [Suspect]
     Dosage: 600 MG, SINGLE
     Route: 042
     Dates: start: 20070615, end: 20070615
  4. SOLIRIS [Suspect]
     Dosage: 600 MG, SINGLE
     Route: 042
     Dates: start: 20070622, end: 20070622
  5. SOLIRIS [Suspect]
     Dosage: 900 MG, SINGLE
     Route: 042
     Dates: start: 20070629, end: 20070629
  6. SOLIRIS [Suspect]
     Dosage: 900 MG, SINGLE
     Route: 042
     Dates: start: 20070713, end: 20070713
  7. SOLIRIS [Suspect]
     Dosage: 900 MG, SINGLE
     Route: 042
     Dates: start: 20070727, end: 20070727
  8. FOLIC ACID [Concomitant]
     Dosage: 600 UG, QD
  9. ASPIRIN [Concomitant]
  10. LEVAQUIN [Concomitant]
     Dosage: 500 MG, QD
     Route: 048
  11. DIFLUCAN [Concomitant]
     Dosage: 100 MG, QD
     Route: 048

REACTIONS (3)
  - BACK PAIN [None]
  - DRUG INEFFECTIVE [None]
  - PYREXIA [None]
